FAERS Safety Report 6374458-5 (Version None)
Quarter: 2009Q3

REPORT INFORMATION
  Report Type: 
  Country: None (occurrence: None)
  Receive Date: 20090921
  Receipt Date: 20090909
  Transmission Date: 20100115
  Serious: Yes (Hospitalization)
  Sender: FDA-Public Use
  Company Number: 1-19860344

PATIENT
  Age: 54 Year
  Sex: Male
  Weight: 90.7194 kg

DRUGS (6)
  1. FENTANYL TRANSDERMAL SYSTEM [Suspect]
     Indication: MUSCULOSKELETAL PAIN
     Dosage: 100MCG/HR EVERY 72 HR, TRANSDERMAL
     Route: 062
     Dates: start: 20090420
  2. PRILOSEC [Concomitant]
  3. JANUMET (SITAGLIPTIN/METFORMIN HYDROCHLORIDE) [Concomitant]
  4. ZOCOR [Concomitant]
  5. LISINOPRIL [Concomitant]
  6. DARVOCET (PROPOXYPHENE NAPSYLATE AND ACETAMINOPHEN) [Concomitant]

REACTIONS (1)
  - GASTROOESOPHAGEAL REFLUX DISEASE [None]
